FAERS Safety Report 6936143-8 (Version None)
Quarter: 2010Q3

REPORT INFORMATION
  Report Type: 
  Country: None (occurrence: None)
  Receive Date: 20100819
  Receipt Date: 20100819
  Transmission Date: 20110219
  Serious: Yes (Other)
  Sender: FDA-Public Use
  Company Number: None

PATIENT
  Age: 42 Year
  Sex: Male
  Weight: 117.9352 kg

DRUGS (1)
  1. DEPAKOTE [Suspect]
     Dosage: 500MG X3 PO
     Route: 048
     Dates: start: 20000101, end: 20100817

REACTIONS (18)
  - ACNE [None]
  - ALOPECIA [None]
  - FAECAL INCONTINENCE [None]
  - FATIGUE [None]
  - FEAR OF EATING [None]
  - HAIR TEXTURE ABNORMAL [None]
  - HUNGER [None]
  - HYPERHIDROSIS [None]
  - INSOMNIA [None]
  - NAUSEA [None]
  - NERVOUSNESS [None]
  - PAIN [None]
  - POLYURIA [None]
  - SCAR [None]
  - SEXUAL DYSFUNCTION [None]
  - SOCIAL PROBLEM [None]
  - THIRST [None]
  - UNEVALUABLE EVENT [None]
